FAERS Safety Report 16425764 (Version 2)
Quarter: 2019Q2

REPORT INFORMATION
  Report Type: Spontaneous
  Country: US (occurrence: US)
  Receive Date: 20190613
  Receipt Date: 20190620
  Transmission Date: 20190711
  Serious: No
  Sender: FDA-Public Use
  Company Number: US-PFIZER INC-2019246824

PATIENT
  Age: 83 Year
  Sex: Male
  Weight: 75.3 kg

DRUGS (1)
  1. TIKOSYN [Suspect]
     Active Substance: DOFETILIDE
     Indication: ARRHYTHMIA
     Dosage: TWO CAPSULES A DAY (12 HOURS APART)
     Route: 048
     Dates: start: 20190516

REACTIONS (2)
  - Dizziness [Unknown]
  - Balance disorder [Unknown]
